FAERS Safety Report 21681430 (Version 2)
Quarter: 2023Q1

REPORT INFORMATION
  Report Type: Report from Study
  Country: US (occurrence: US)
  Receive Date: 20221205
  Receipt Date: 20230111
  Transmission Date: 20230418
  Serious: Yes (Hospitalization, Other)
  Sender: FDA-Public Use
  Company Number: US-KYOWAKIRIN-2022BKK018664

PATIENT

DRUGS (1)
  1. MOGAMULIZUMAB [Suspect]
     Active Substance: MOGAMULIZUMAB
     Indication: Product used for unknown indication
     Dosage: 20 MG/5 ML
     Route: 042

REACTIONS (8)
  - Vascular device infection [Unknown]
  - Device related sepsis [Unknown]
  - Infusion site scar [Unknown]
  - Skin exfoliation [Unknown]
  - Erythema [Unknown]
  - Headache [Unknown]
  - Rash [Unknown]
  - Emergency care [Unknown]

NARRATIVE: CASE EVENT DATE: 20221201
